FAERS Safety Report 6375309-5 (Version None)
Quarter: 2009Q3

REPORT INFORMATION
  Report Type: 
  Country: None (occurrence: None)
  Receive Date: 20090924
  Receipt Date: 20090919
  Transmission Date: 20100115
  Serious: Yes (Death)
  Sender: FDA-Public Use
  Company Number: A0808720A

PATIENT
  Age: 38 Year
  Sex: Female

DRUGS (2)
  1. TYKERB [Suspect]
     Dosage: 1.25MG PER DAY
     Route: 065
     Dates: start: 20080324, end: 20080908
  2. CAPECITABINE [Suspect]
     Dosage: 2MGM2 CYCLIC
     Dates: start: 20080324, end: 20080908

REACTIONS (5)
  - DIARRHOEA [None]
  - DISEASE PROGRESSION [None]
  - PALMAR-PLANTAR ERYTHRODYSAESTHESIA SYNDROME [None]
  - PARONYCHIA [None]
  - URTICARIA [None]
